FAERS Safety Report 7488505-0 (Version None)
Quarter: 2011Q2

REPORT INFORMATION
  Report Type: 
  Country: None (occurrence: None)
  Receive Date: 20110518
  Receipt Date: 20110511
  Transmission Date: 20111010
  Serious: Yes (Other)
  Sender: FDA-Public Use
  Company Number: FR-MERCK-1105USA02380

PATIENT
  Age: 66 Year
  Sex: Female

DRUGS (3)
  1. ZOLINZA [Suspect]
     Route: 048
     Dates: start: 20110321, end: 20110330
  2. ZOLINZA [Suspect]
     Route: 048
     Dates: start: 20110331, end: 20110401
  3. ZOLINZA [Suspect]
     Route: 048
     Dates: start: 20110415

REACTIONS (8)
  - ABDOMINAL PAIN UPPER [None]
  - THROMBOCYTOPENIA [None]
  - HEADACHE [None]
  - GASTROINTESTINAL MOTILITY DISORDER [None]
  - VOMITING [None]
  - NAUSEA [None]
  - RHINITIS ATROPHIC [None]
  - DIZZINESS [None]
